FAERS Safety Report 8019376-1 (Version None)
Quarter: 2012Q1

REPORT INFORMATION
  Report Type: 
  Country: None (occurrence: None)
  Receive Date: 20120103
  Receipt Date: 20111221
  Transmission Date: 20120608
  Serious: Yes (Other)
  Sender: FDA-Public Use
  Company Number: PHHY2011JP111987

PATIENT
  Sex: Male
  Weight: 48 kg

DRUGS (10)
  1. CRESTOR [Concomitant]
     Indication: PERIPHERAL ARTERIAL OCCLUSIVE DISEASE
     Dosage: 2.5 MG, UNK
     Route: 048
     Dates: start: 20100204, end: 20110815
  2. PLETAL [Concomitant]
     Indication: PERIPHERAL ARTERIAL OCCLUSIVE DISEASE
     Dosage: 200 MG, UNK
     Route: 048
     Dates: start: 20091203, end: 20110815
  3. LASIX [Suspect]
     Dosage: 40 MG, DAILY
     Route: 048
     Dates: start: 20110523, end: 20110715
  4. CARVEDILOL [Concomitant]
     Indication: HYPERTENSION
     Dosage: 5 MG, UNK
     Route: 048
     Dates: start: 20091203, end: 20110707
  5. ALLOPURINOL [Concomitant]
     Indication: HYPERURICAEMIA
     Dosage: 100 MG, UNK
     Dates: start: 20091203, end: 20110815
  6. ASPIRIN [Concomitant]
     Indication: PERIPHERAL ARTERIAL OCCLUSIVE DISEASE
     Dosage: 100 MG, UNK
     Dates: start: 20091203, end: 20110815
  7. DIOVAN [Suspect]
     Indication: HYPERTENSION
     Dosage: 80 MG, DAILY
     Route: 048
     Dates: start: 20091203, end: 20101102
  8. LASIX [Suspect]
     Indication: OEDEMA
     Dosage: 30 MG, DAILY
     Route: 047
     Dates: start: 20091203
  9. MIGLITOL [Concomitant]
     Indication: DIABETES MELLITUS
     Dosage: 50 MG, UNK
     Route: 048
     Dates: start: 20091203, end: 20110815
  10. ATELEC [Concomitant]
     Indication: HYPERTENSION
     Dosage: 20 MG, UNK
     Route: 048
     Dates: start: 20091203, end: 20110620

REACTIONS (3)
  - OEDEMA [None]
  - RENAL ARTERY STENOSIS [None]
  - RENAL IMPAIRMENT [None]
